FAERS Safety Report 7003178-9 (Version None)
Quarter: 2010Q3

REPORT INFORMATION
  Report Type: 
  Country: None (occurrence: None)
  Receive Date: 20100920
  Receipt Date: 20100304
  Transmission Date: 20110219
  Serious: No
  Sender: FDA-Public Use
  Company Number: US-ASTRAZENECA-2010SE09604

PATIENT
  Sex: Female

DRUGS (2)
  1. SEROQUEL [Suspect]
     Indication: BIPOLAR DISORDER
     Route: 048
     Dates: start: 20080901, end: 20100201
  2. SEROQUEL [Suspect]
     Route: 048
     Dates: start: 20100301

REACTIONS (6)
  - ACTIVITIES OF DAILY LIVING IMPAIRED [None]
  - BACK PAIN [None]
  - CONFUSIONAL STATE [None]
  - CRYING [None]
  - DRUG DOSE OMISSION [None]
  - FEELING ABNORMAL [None]
